FAERS Safety Report 24022883 (Version 2)
Quarter: 2024Q2

REPORT INFORMATION
  Report Type: Report from Study
  Country: US (occurrence: US)
  Receive Date: 20240627
  Receipt Date: 20240627
  Transmission Date: 20240715
  Serious: No
  Sender: FDA-Public Use
  Company Number: US-ROCHE-3421048

PATIENT
  Age: 61 Year
  Sex: Male
  Weight: 106.59 kg

DRUGS (13)
  1. VABYSMO [Suspect]
     Active Substance: FARICIMAB\FARICIMAB-SVOA
     Indication: Neovascular age-related macular degeneration
     Dosage: ONGOING: YES? FREQUENCY TEXT:6 TO 8 WEEKS
     Route: 050
     Dates: start: 202211
  2. VABYSMO [Suspect]
     Active Substance: FARICIMAB\FARICIMAB-SVOA
     Indication: Choroidal neovascularisation
  3. AVASTIN [Suspect]
     Active Substance: BEVACIZUMAB
     Indication: Neovascular age-related macular degeneration
     Route: 031
  4. AVASTIN [Suspect]
     Active Substance: BEVACIZUMAB
     Indication: Choroidal neovascularisation
  5. FINASTERIDE [Concomitant]
     Active Substance: FINASTERIDE
  6. OZEMPIC [Concomitant]
     Active Substance: SEMAGLUTIDE
  7. LANTUS [Concomitant]
     Active Substance: INSULIN GLARGINE
  8. HYDROCHLOROTHIAZIDE [Concomitant]
     Active Substance: HYDROCHLOROTHIAZIDE
  9. HUMALOG [Concomitant]
     Active Substance: INSULIN LISPRO
  10. NEURONTIN [Concomitant]
     Active Substance: GABAPENTIN
  11. ACETAZOLAMIDE [Concomitant]
     Active Substance: ACETAZOLAMIDE
  12. ERGOCALCIFEROL [Concomitant]
     Active Substance: ERGOCALCIFEROL
  13. CINNAMON [Concomitant]
     Active Substance: CINNAMON

REACTIONS (4)
  - Off label use [Unknown]
  - Off label use [Unknown]
  - No adverse event [Unknown]
  - Product prescribing error [Unknown]
